FAERS Safety Report 16036952 (Version 1)
Quarter: 2019Q1

REPORT INFORMATION
  Report Type: Spontaneous
  Country: US (occurrence: US)
  Receive Date: 20190305
  Receipt Date: 20190305
  Transmission Date: 20190418
  Serious: Yes (Hospitalization, Other)
  Sender: FDA-Public Use
  Company Number: US-PFIZER INC-2019089792

PATIENT
  Age: 46 Year
  Sex: Female

DRUGS (1)
  1. EMBEDA [Suspect]
     Active Substance: MORPHINE SULFATE\NALTREXONE HYDROCHLORIDE
     Dosage: 60 MG, 2X/DAY (60 MG1 PO Q 12H (EVERY 12 HOUR))
     Route: 048

REACTIONS (2)
  - Injury [Unknown]
  - Fall [Unknown]
